FAERS Safety Report 20647514 (Version 2)
Quarter: 2022Q2

REPORT INFORMATION
  Report Type: Report from Study
  Country: US (occurrence: US)
  Receive Date: 20220329
  Receipt Date: 20220621
  Transmission Date: 20220721
  Serious: No
  Sender: FDA-Public Use
  Company Number: US-NOVARTISTESTPH-NVSC2022US071117

PATIENT
  Sex: Male

DRUGS (1)
  1. COSENTYX [Suspect]
     Active Substance: SECUKINUMAB
     Indication: Ankylosing spondylitis
     Dosage: 150 MG (ONCE A WEEK FOR 5 WEEKS AND THEN Q 4)
     Route: 058

REACTIONS (3)
  - Musculoskeletal stiffness [Unknown]
  - Product dose omission issue [Not Recovered/Not Resolved]
  - Symptom recurrence [Unknown]
